FAERS Safety Report 12791380 (Version 5)
Quarter: 2018Q4

REPORT INFORMATION
  Report Type: Report from Study
  Country: PL (occurrence: PL)
  Receive Date: 20160929
  Receipt Date: 20181017
  Transmission Date: 20190204
  Serious: No
  Sender: FDA-Public Use
  Company Number: PHHO2016PL013651

PATIENT
  Age: 61 Year
  Sex: Female

DRUGS (3)
  1. AXTIL [Concomitant]
     Indication: HYPERTENSION
     Route: 065
     Dates: start: 20110701
  2. CONTROLOC [Concomitant]
     Active Substance: PANTOPRAZOLE SODIUM
     Indication: GASTRITIS
     Route: 048
     Dates: start: 20100518
  3. GILENYA [Suspect]
     Active Substance: FINGOLIMOD HYDROCHLORIDE
     Indication: MULTIPLE SCLEROSIS
     Dosage: 0.5 MG, QD
     Route: 048
     Dates: start: 20110224, end: 20160916

REACTIONS (1)
  - Eye naevus [Recovered/Resolved with Sequelae]

NARRATIVE: CASE EVENT DATE: 20160916
